FAERS Safety Report 17632888 (Version 1)
Quarter: 2020Q2

REPORT INFORMATION
  Report Type: Spontaneous
  Country: US (occurrence: US)
  Receive Date: 20200406
  Receipt Date: 20200406
  Transmission Date: 20200713
  Serious: No
  Sender: FDA-Public Use
  Company Number: US-SA-2020SA083825

PATIENT
  Age: 30 Year

DRUGS (1)
  1. ALPROLIX [Suspect]
     Active Substance: EFTRENONACOG ALFA
     Dosage: 9000 IU
     Route: 042

REACTIONS (1)
  - Meniscus injury [Unknown]

NARRATIVE: CASE EVENT DATE: 20200319
